FAERS Safety Report 8152949-4 (Version None)
Quarter: 2012Q1

REPORT INFORMATION
  Report Type: 
  Country: None (occurrence: None)
  Receive Date: 20120221
  Receipt Date: 20120207
  Transmission Date: 20120608
  Serious: Yes (Hospitalization, Other)
  Sender: FDA-Public Use
  Company Number: FI-UCBSA-051162

PATIENT
  Age: 15 Year
  Sex: Female

DRUGS (3)
  1. ENBREL [Suspect]
     Indication: JUVENILE ARTHRITIS
     Route: 058
     Dates: start: 20110920, end: 20111128
  2. ARAVA [Concomitant]
     Indication: JUVENILE ARTHRITIS
     Dates: start: 20101215
  3. XYZAL [Suspect]
     Dates: start: 20111128

REACTIONS (2)
  - SENSATION OF FOREIGN BODY [None]
  - SUFFOCATION FEELING [None]
